FAERS Safety Report 24307313 (Version 1)
Quarter: 2024Q3

REPORT INFORMATION
  Report Type: Spontaneous
  Country: US (occurrence: None)
  Receive Date: 20240911
  Receipt Date: 20240911
  Transmission Date: 20241016
  Serious: No
  Sender: Public
  Company Number: None

PATIENT
  Age: 79 Year
  Sex: Male

DRUGS (1)
  1. ADYNOVATE [Suspect]
     Active Substance: ANTIHEMOPHILIC FACTOR, HUMAN RECOMBINANT
     Indication: Factor VIII deficiency
     Dosage: OTHER QUANTITY : 4000UNITS;?FREQUENCY : DAILY;?
     Route: 042
     Dates: start: 202207

REACTIONS (3)
  - Fall [None]
  - Chest injury [None]
  - Swelling [None]

NARRATIVE: CASE EVENT DATE: 20240905
